FAERS Safety Report 20215315 (Version 1)
Quarter: 2021Q4

REPORT INFORMATION
  Report Type: Report from Study
  Country: BR (occurrence: BR)
  Receive Date: 20211222
  Receipt Date: 20211222
  Transmission Date: 20220303
  Serious: Yes (Death, Other)
  Sender: FDA-Public Use
  Company Number: BR-JNJFOC-20211234230

PATIENT
  Age: 78 Year
  Sex: Female
  Weight: 44 kg

DRUGS (1)
  1. INFLIXIMAB [Suspect]
     Active Substance: INFLIXIMAB
     Indication: Rheumatoid arthritis
     Route: 042

REACTIONS (4)
  - Death [Fatal]
  - Appendicitis perforated [Unknown]
  - Infection [Unknown]
  - Uterine leiomyoma [Unknown]
